FAERS Safety Report 6644738-4 (Version None)
Quarter: 2010Q1

REPORT INFORMATION
  Report Type: 
  Country: None (occurrence: None)
  Receive Date: 20100322
  Receipt Date: 20100310
  Transmission Date: 20100710
  Serious: Yes (Other)
  Sender: FDA-Public Use
  Company Number: JP-PFIZER INC-2010031969

PATIENT

DRUGS (2)
  1. EXEMESTANE [Suspect]
     Dosage: UNK
  2. FAMOTIDINE [Suspect]
     Dosage: UNK

REACTIONS (1)
  - PLATELET COUNT DECREASED [None]
